FAERS Safety Report 14206753 (Version 1)
Quarter: 2017Q4

REPORT INFORMATION
  Report Type: Spontaneous
  Country: ES (occurrence: ES)
  Receive Date: 20171121
  Receipt Date: 20171121
  Transmission Date: 20180321
  Serious: Yes (Life-Threatening, Hospitalization, Other)
  Sender: FDA-Public Use
  Company Number: ES-ALEMBIC PHARMACUETICALS LIMITED-2017SCAL000920

PATIENT

DRUGS (2)
  1. LITHIUM CARBONATE. [Suspect]
     Active Substance: LITHIUM CARBONATE
     Indication: DEPRESSION
  2. LITHIUM CARBONATE. [Suspect]
     Active Substance: LITHIUM CARBONATE
     Indication: BIPOLAR DISORDER
     Dosage: UNK

REACTIONS (7)
  - Antipsychotic drug level increased [Unknown]
  - Cerebellar syndrome [Not Recovered/Not Resolved]
  - Cerebellar atrophy [Unknown]
  - Neurotoxicity [Unknown]
  - Cerebral atrophy [Unknown]
  - Encephalopathy [Unknown]
  - Hallucination, visual [Unknown]
